FAERS Safety Report 11823924 (Version 1)
Quarter: 2015Q4

REPORT INFORMATION
  Report Type: Spontaneous
  Country: US (occurrence: GB)
  Receive Date: 20151210
  Receipt Date: 20151210
  Transmission Date: 20160305
  Serious: Yes (Disabling)
  Sender: FDA-Public Use
  Company Number: GB-AKRON, INC.-1045324

PATIENT
  Age: 70 Year
  Sex: Female
  Weight: 110 kg

DRUGS (3)
  1. ENOXAPARIN SODIUM. [Concomitant]
     Active Substance: ENOXAPARIN SODIUM
     Dates: start: 20150220, end: 20150302
  2. WARFARIN SODIUM. [Concomitant]
     Active Substance: WARFARIN SODIUM
     Dates: start: 20140903
  3. ZIOPTAN [Suspect]
     Active Substance: TAFLUPROST
     Dates: start: 20140718

REACTIONS (3)
  - Hyperacusis [Recovered/Resolved]
  - Photophobia [None]
  - Photosensitivity reaction [None]

NARRATIVE: CASE EVENT DATE: 20141103
